FAERS Safety Report 13943610 (Version 1)
Quarter: 2017Q3

REPORT INFORMATION
  Report Type: Spontaneous
  Country: US (occurrence: US)
  Receive Date: 20170907
  Receipt Date: 20170907
  Transmission Date: 20171128
  Serious: Yes (Other)
  Sender: FDA-Public Use
  Company Number: US-SUN PHARMACEUTICAL INDUSTRIES LTD-2017US-149223

PATIENT
  Age: 27 Year
  Sex: Male

DRUGS (2)
  1. PREDNISONE. [Suspect]
     Active Substance: PREDNISONE
     Indication: SARCOIDOSIS
     Route: 048
  2. MYCOPHENOLATE [Suspect]
     Active Substance: MYCOPHENOLIC ACID
     Indication: CARDIAC SARCOIDOSIS
     Route: 065

REACTIONS (3)
  - Respiratory failure [Recovering/Resolving]
  - Disseminated varicella zoster vaccine virus infection [Unknown]
  - Combined immunodeficiency [Unknown]
